FAERS Safety Report 6204931-1 (Version None)
Quarter: 2009Q2

REPORT INFORMATION
  Report Type: 
  Country: None (occurrence: None)
  Receive Date: 20090526
  Receipt Date: 20090511
  Transmission Date: 20091009
  Serious: Yes (Hospitalization)
  Sender: FDA-Public Use
  Company Number: GXKR2009GB05772

PATIENT
  Sex: Female

DRUGS (1)
  1. PROPAIN (NGX)(PARACETAMOL, CODEINE, DIPHENHYDRAMINE, CAFFEINE) UNKNOWN [Suspect]
     Dosage: ORAL
     Route: 048

REACTIONS (3)
  - BLOOD PRESSURE INCREASED [None]
  - EYE SWELLING [None]
  - RASH MACULAR [None]
